FAERS Safety Report 13157909 (Version 1)
Quarter: 2017Q1

REPORT INFORMATION
  Report Type: Report from Study
  Country: US (occurrence: US)
  Receive Date: 20170127
  Receipt Date: 20170127
  Transmission Date: 20170428
  Serious: Yes (Death, Other)
  Sender: FDA-Public Use
  Company Number: US-BAYER-2016-150050

PATIENT
  Age: 67 Year
  Sex: Female

DRUGS (1)
  1. ADEMPAS [Suspect]
     Active Substance: RIOCIGUAT
     Indication: PULMONARY ARTERIAL HYPERTENSION
     Dosage: 0.5 MG, TID
     Route: 048
     Dates: start: 20151109, end: 20161227

REACTIONS (4)
  - Anaemia [Not Recovered/Not Resolved]
  - Death [Fatal]
  - Gastrointestinal haemorrhage [None]
  - Haematochezia [None]

NARRATIVE: CASE EVENT DATE: 20160721
